FAERS Safety Report 6929365-3 (Version None)
Quarter: 2010Q3

REPORT INFORMATION
  Report Type: 
  Country: None (occurrence: None)
  Receive Date: 20100818
  Receipt Date: 20100809
  Transmission Date: 20110219
  Serious: Yes (Other)
  Sender: FDA-Public Use
  Company Number: FR-JNJFOC-20100605464

PATIENT
  Sex: Female
  Weight: 58 kg

DRUGS (4)
  1. REMINYL LP [Suspect]
     Indication: MEMORY IMPAIRMENT
     Route: 048
  2. REMINYL LP [Suspect]
     Route: 048
  3. METFORMIN HCL [Concomitant]
     Indication: DIABETES MELLITUS
     Route: 048
  4. NOVONORM [Concomitant]
     Indication: DIABETES MELLITUS
     Route: 065

REACTIONS (6)
  - ALANINE AMINOTRANSFERASE INCREASED [None]
  - ASPARTATE AMINOTRANSFERASE INCREASED [None]
  - ASTHENIA [None]
  - CEREBRAL INFARCTION [None]
  - HYPERSOMNIA [None]
  - OFF LABEL USE [None]
